FAERS Safety Report 23765725 (Version 1)
Quarter: 2024Q2

REPORT INFORMATION
  Report Type: Spontaneous
  Country: PT (occurrence: PT)
  Receive Date: 20240421
  Receipt Date: 20240421
  Transmission Date: 20240716
  Serious: Yes (Other)
  Sender: FDA-Public Use
  Company Number: PT-INFARMED-R202403-946

PATIENT
  Age: 44 Year
  Sex: Female

DRUGS (3)
  1. NAPROXEN [Suspect]
     Active Substance: NAPROXEN
     Indication: Odynophagia
     Dosage: UNK
     Route: 065
     Dates: start: 20240325, end: 20240327
  2. DICLOFENAC [Suspect]
     Active Substance: DICLOFENAC
     Indication: Odynophagia
     Dosage: UNK
     Route: 065
     Dates: start: 20240325, end: 20240327
  3. DICLOFENAC SODIUM [Suspect]
     Active Substance: DICLOFENAC\DICLOFENAC SODIUM
     Indication: Odynophagia
     Dosage: UNK (ORAL SOLUTION)
     Route: 065
     Dates: start: 20240325, end: 20240327

REACTIONS (3)
  - Lip oedema [Unknown]
  - Eye oedema [Unknown]
  - Rash [Unknown]

NARRATIVE: CASE EVENT DATE: 20240327
